FAERS Safety Report 5483908-8 (Version None)
Quarter: 2007Q4

REPORT INFORMATION
  Report Type: 
  Country: None (occurrence: None)
  Receive Date: 20071009
  Receipt Date: 20071009
  Transmission Date: 20080405
  Serious: Yes (Hospitalization)
  Sender: FDA-Public Use
  Company Number: None

PATIENT
  Age: 59 Year
  Sex: Male

DRUGS (3)
  1. ERTAPENEM [Suspect]
     Indication: OSTEOMYELITIS
     Dosage: 1GM EVERY DAY IV
     Route: 042
     Dates: start: 20070605, end: 20070615
  2. TRAZODONE HCL [Suspect]
     Indication: DEPRESSION
     Dosage: 100MG HS PO
     Route: 048
     Dates: start: 20070321, end: 20070614
  3. TRAZODONE HCL [Suspect]
     Indication: INSOMNIA
     Dosage: 100MG HS PO
     Route: 048
     Dates: start: 20070321, end: 20070614

REACTIONS (5)
  - AGITATION [None]
  - CONFUSIONAL STATE [None]
  - DELIRIUM [None]
  - HALLUCINATION [None]
  - INCORRECT DRUG ADMINISTRATION DURATION [None]
